FAERS Safety Report 13236540 (Version 3)
Quarter: 2017Q3

REPORT INFORMATION
  Report Type: Spontaneous
  Country: US (occurrence: US)
  Receive Date: 20170215
  Receipt Date: 20170706
  Transmission Date: 20171127
  Serious: No
  Sender: FDA-Public Use
  Company Number: US-PFIZER INC-2017062109

PATIENT
  Age: 67 Year
  Sex: Male

DRUGS (2)
  1. XALKORI [Suspect]
     Active Substance: CRIZOTINIB
     Dosage: 250 MG, 2X/DAY
     Route: 048
  2. XALKORI [Suspect]
     Active Substance: CRIZOTINIB
     Dosage: 200 MG, 2X/DAY

REACTIONS (4)
  - Flatulence [Recovering/Resolving]
  - Gastrointestinal disorder [Recovering/Resolving]
  - Burn of internal organs [Recovering/Resolving]
  - Abdominal pain upper [Recovering/Resolving]
